FAERS Safety Report 19091302 (Version 1)
Quarter: 2021Q2

REPORT INFORMATION
  Report Type: Other
  Country: KR (occurrence: KR)
  Receive Date: 20210405
  Receipt Date: 20210405
  Transmission Date: 20210717
  Serious: Yes (Other)
  Sender: FDA-Public Use
  Company Number: KR-ROCHE-2724162

PATIENT
  Age: 51 Year
  Sex: Female

DRUGS (4)
  1. PRALSETINIB. [Suspect]
     Active Substance: PRALSETINIB
     Route: 048
     Dates: start: 20201015
  2. LEVOTHYROXINE. [Concomitant]
     Active Substance: LEVOTHYROXINE
     Indication: HYPOTHYROIDISM
     Dates: start: 20191119
  3. PRALSETINIB. [Suspect]
     Active Substance: PRALSETINIB
     Route: 048
     Dates: start: 20200721, end: 20200913
  4. PRALSETINIB. [Suspect]
     Active Substance: PRALSETINIB
     Indication: NON-SMALL CELL LUNG CANCER
     Dosage: MOST RECENT DOSE OF PRALSETINIB RECEIVED ON 13/SEP/2020
     Route: 048
     Dates: start: 20200616, end: 20200620

REACTIONS (1)
  - Peritoneal tuberculosis [Recovering/Resolving]

NARRATIVE: CASE EVENT DATE: 20200928
